FAERS Safety Report 19001045 (Version 5)
Quarter: 2021Q3

REPORT INFORMATION
  Report Type: Report from Study
  Country: US (occurrence: US)
  Receive Date: 20210312
  Receipt Date: 20210923
  Transmission Date: 20211014
  Serious: Yes (Hospitalization)
  Sender: FDA-Public Use
  Company Number: NVSC2021US051672

PATIENT
  Age: 70 Year
  Sex: Female
  Weight: 67 kg

DRUGS (8)
  1. SYNTHROID [Concomitant]
     Active Substance: LEVOTHYROXINE SODIUM
     Indication: HYPOTHYROIDISM
     Dosage: 112 MG, QD
     Route: 048
     Dates: start: 2005
  2. KISQALI [Suspect]
     Active Substance: RIBOCICLIB
     Indication: HER2 NEGATIVE BREAST CANCER
     Dosage: 400 MG, QD,DAY 1,12
     Route: 048
     Dates: start: 20191011, end: 20210227
  3. ARIMIDEX [Suspect]
     Active Substance: ANASTROZOLE
     Indication: BREAST CANCER
     Dosage: 1 MG, QD
     Route: 048
     Dates: start: 20190920, end: 20210302
  4. ANASTROZOLE. [Suspect]
     Active Substance: ANASTROZOLE
     Indication: HER2 NEGATIVE BREAST CANCER
     Dosage: 1 MG
     Route: 048
     Dates: start: 20191011
  5. KISQALI [Suspect]
     Active Substance: RIBOCICLIB
     Dosage: 400 MG, QD,DAY 1,12
     Route: 048
     Dates: end: 20210302
  6. LISINOPRIL. [Concomitant]
     Active Substance: LISINOPRIL
     Indication: HYPERTENSION
     Dosage: 20 MG, QD
     Route: 048
     Dates: start: 200910
  7. CALCIUM+D [Concomitant]
     Active Substance: CALCIUM\VITAMIN D
     Indication: SUPPLEMENTATION THERAPY
     Dosage: 1 UNK, QD
     Route: 048
     Dates: start: 2010
  8. PROLIA [Concomitant]
     Active Substance: DENOSUMAB
     Indication: OSTEOPENIA
     Dosage: 60 MG, QD
     Route: 058
     Dates: start: 20200204

REACTIONS (1)
  - Pulmonary embolism [Recovered/Resolved]

NARRATIVE: CASE EVENT DATE: 20210302
